FAERS Safety Report 6420706-2 (Version None)
Quarter: 2009Q4

REPORT INFORMATION
  Report Type: 
  Country: None (occurrence: None)
  Receive Date: 20091027
  Receipt Date: 20050426
  Transmission Date: 20100525
  Serious: Yes (Hospitalization)
  Sender: FDA-Public Use
  Company Number: 2009010838

PATIENT
  Sex: Male
  Weight: 129.2752 kg

DRUGS (15)
  1. ACTIQ [Suspect]
     Indication: PAIN
     Dosage: 600 MCG, BU
     Route: 002
  2. NORCO (PARAMACETAL, HYDROCODONE BITARTRATE) [Concomitant]
  3. EFFEXOR XR [Concomitant]
  4. CRESTOR [Concomitant]
  5. TOPAMAX [Concomitant]
  6. ASPIRIN [Concomitant]
  7. ANDROGEL [Concomitant]
  8. DYNACIRC CR [Concomitant]
  9. GABATRIL (TIAGABINE HYDROCHLORIDE) [Concomitant]
  10. DIAZEPAM [Concomitant]
  11. HYDROCODONE/AP (HYDROCODONE) [Concomitant]
  12. PLAVIX [Concomitant]
  13. LOTENSIN (CAPTOPRIL) [Concomitant]
  14. TRICOR (ADENSINE) [Concomitant]
  15. ZIAC [Concomitant]

REACTIONS (5)
  - ARTERIAL OCCLUSIVE DISEASE [None]
  - DRUG EFFECT DECREASED [None]
  - INCORRECT ROUTE OF DRUG ADMINISTRATION [None]
  - OROPHARYNGEAL BLISTERING [None]
  - TOOTH DISORDER [None]
